FAERS Safety Report 16084001 (Version 1)
Quarter: 2019Q2

REPORT INFORMATION
  Report Type: Spontaneous
  Country: US (occurrence: US)
  Receive Date: 20190316
  Receipt Date: 20190316
  Transmission Date: 20190711
  Serious: Yes (Other)
  Sender: FDA-Public Use
  Company Number: None

PATIENT
  Age: 29 Year
  Sex: Female
  Weight: 180 kg

DRUGS (2)
  1. SERTRALINE [Suspect]
     Active Substance: SERTRALINE HYDROCHLORIDE
     Indication: ANXIETY
     Dosage: ?          QUANTITY:27 TABLET(S);?
     Dates: start: 20181203, end: 20181207
  2. SERTRALINE [Suspect]
     Active Substance: SERTRALINE HYDROCHLORIDE
     Indication: DEPRESSION
     Dosage: ?          QUANTITY:27 TABLET(S);?
     Dates: start: 20181203, end: 20181207

REACTIONS (17)
  - Retching [None]
  - Feeling cold [None]
  - Hypoaesthesia [None]
  - Pharyngeal swelling [None]
  - Foreign body in respiratory tract [None]
  - Dizziness [None]
  - Drug ineffective [None]
  - Ovarian cyst ruptured [None]
  - Stress [None]
  - Panic attack [None]
  - Anxiety [None]
  - Visual impairment [None]
  - Aphonia [None]
  - Therapy cessation [None]
  - Nausea [None]
  - Hyperhidrosis [None]
  - Palpitations [None]

NARRATIVE: CASE EVENT DATE: 20181206
